FAERS Safety Report 9259233 (Version 3)
Quarter: 2013Q2

REPORT INFORMATION
  Report Type: Report from Study
  Country: UA (occurrence: UA)
  Receive Date: 20130426
  Receipt Date: 20130528
  Transmission Date: 20140414
  Serious: Yes (Death)
  Sender: FDA-Public Use
  Company Number: UA-PFIZER INC-2013099711

PATIENT
  Age: 55 Year
  Sex: Female
  Weight: 92 kg

DRUGS (8)
  1. INOTUZUMAB OZOGAMICIN [Suspect]
     Indication: NON-HODGKIN^S LYMPHOMA
     Dosage: 3.7 MG, CYCLIC (1.8MG/M2 ON DAY 2 OF EACH 28 DAY CYCLE)
     Route: 042
     Dates: start: 20120920, end: 20121214
  2. RITUXIMAB [Suspect]
     Indication: NON-HODGKIN^S LYMPHOMA
     Dosage: 776 MG, CYCLIC  (375 MG/M2) FOR CYCLE 1 AND CYCLE 2 (ON DAY 1 OF EACH 28 DAY CYCLE)
     Route: 042
     Dates: start: 20120919
  3. RITUXIMAB [Suspect]
     Dosage: 780 MG/M2, CYCLIC (375MG/M2) FOR CYCLE 3 AND CYCLE 4 (ON DAY 1 OF EACH 28 DAY CYCLE)
     Route: 042
     Dates: end: 20121213
  4. FLUCONAZOLE [Suspect]
     Indication: GASTROINTESTINAL FUNGAL INFECTION
     Dosage: 200 MG, 2X/DAY
     Route: 042
     Dates: start: 20130301, end: 20130305
  5. VORICONAZOLE [Suspect]
     Indication: GASTROINTESTINAL FUNGAL INFECTION
     Dosage: 100 MG, 2X/DAY
     Route: 042
     Dates: start: 20130306, end: 20130309
  6. VORICONAZOLE [Suspect]
     Indication: GASTROINTESTINAL FUNGAL INFECTION
     Dosage: 200 MG, 2X/DAY
     Route: 048
     Dates: start: 20130310, end: 20130320
  7. IMIPENEM [Suspect]
     Indication: PNEUMONIA
     Dosage: 500 MG, 4X/DAY
     Route: 042
     Dates: start: 20130306, end: 20130319
  8. CEFUROXIME [Suspect]
     Indication: PNEUMONIA
     Dosage: 750 MG, 3X/DAY
     Route: 042
     Dates: start: 20130301, end: 20130305

REACTIONS (1)
  - Liver injury [Fatal]
